FAERS Safety Report 15317645 (Version 2)
Quarter: 2018Q3

REPORT INFORMATION
  Report Type: Report from Study
  Country: AR (occurrence: AR)
  Receive Date: 20180824
  Receipt Date: 20180829
  Transmission Date: 20181010
  Serious: Yes (Hospitalization, Other)
  Sender: FDA-Public Use
  Company Number: PHHY2018AR076926

PATIENT
  Age: 51 Year
  Sex: Female

DRUGS (3)
  1. DIOVAN [Suspect]
     Active Substance: VALSARTAN
     Indication: BLOOD PRESSURE INCREASED
     Dosage: 1 DF, QD
     Route: 065
     Dates: start: 2011
  2. DIOVAN D [Suspect]
     Active Substance: HYDROCHLOROTHIAZIDE\VALSARTAN
     Dosage: 1 DF (HYDROCHLOROTHIAZIDE 25, VALSARTAN 160), QD
     Route: 065
     Dates: start: 201808
  3. DIOVAN D [Suspect]
     Active Substance: HYDROCHLOROTHIAZIDE\VALSARTAN
     Indication: BLOOD PRESSURE INCREASED
     Dosage: 1 DF (HYDROCHLOROTHIAZIDE 12.5, VALSARTAN 160), QD
     Route: 065
     Dates: start: 2011

REACTIONS (5)
  - Bronchitis [Unknown]
  - Urinary tract infection [Recovered/Resolved]
  - Blood pressure increased [Unknown]
  - Diabetes mellitus [Recovering/Resolving]
  - Visual impairment [Unknown]

NARRATIVE: CASE EVENT DATE: 201803
